FAERS Safety Report 16878450 (Version 1)
Quarter: 2019Q4

REPORT INFORMATION
  Report Type: Spontaneous
  Country: CN (occurrence: CN)
  Receive Date: 20191002
  Receipt Date: 20191002
  Transmission Date: 20200122
  Serious: Yes (Hospitalization, Other)
  Sender: FDA-Public Use
  Company Number: CN-SA-2019SA267882

PATIENT
  Age: 61 Year
  Sex: Male

DRUGS (4)
  1. METOPROLOL. [Concomitant]
     Active Substance: METOPROLOL
     Indication: CONGESTIVE CARDIOMYOPATHY
     Dosage: UNK UNK, UNK
     Route: 048
  2. SPIRONOLACTONE. [Concomitant]
     Active Substance: SPIRONOLACTONE
     Indication: CONGESTIVE CARDIOMYOPATHY
     Dosage: UNK UNK, UNK
     Route: 048
  3. FUROSEMIDE. [Concomitant]
     Active Substance: FUROSEMIDE
     Indication: CONGESTIVE CARDIOMYOPATHY
     Dosage: UNK UNK, UNK
     Route: 048
  4. IRBESARTAN. [Suspect]
     Active Substance: IRBESARTAN
     Indication: CONGESTIVE CARDIOMYOPATHY
     Dosage: UNK UNK, UNK
     Route: 065

REACTIONS (16)
  - Drug tolerance decreased [Recovering/Resolving]
  - Extrasystoles [Recovering/Resolving]
  - Necrosis [Recovering/Resolving]
  - Polymyositis [Recovering/Resolving]
  - Disease recurrence [Recovering/Resolving]
  - Regurgitation [Recovering/Resolving]
  - Arrhythmia [Recovering/Resolving]
  - Dyspnoea paroxysmal nocturnal [Recovering/Resolving]
  - Oedema peripheral [Recovering/Resolving]
  - Lymphocytic infiltration [Recovering/Resolving]
  - Condition aggravated [Recovering/Resolving]
  - Atrial fibrillation [Recovering/Resolving]
  - Ventricular tachycardia [Recovering/Resolving]
  - Oedema [Recovering/Resolving]
  - Cardiomegaly [Recovering/Resolving]
  - Tenderness [Recovering/Resolving]
